FAERS Safety Report 7909432-8 (Version None)
Quarter: 2011Q4

REPORT INFORMATION
  Report Type: 
  Country: None (occurrence: None)
  Receive Date: 20111111
  Receipt Date: 20111031
  Transmission Date: 20120403
  Serious: Yes (Other)
  Sender: FDA-Public Use
  Company Number: US-PFIZER INC-2011275980

PATIENT
  Sex: Female
  Weight: 0.48 kg

DRUGS (5)
  1. PANTOPRAZOLE [Suspect]
     Route: 064
  2. EPOPROSTENOL [Concomitant]
  3. ENOXAPARIN [Concomitant]
  4. OXYGEN [Concomitant]
  5. BETAMETHASONE [Concomitant]

REACTIONS (4)
  - LOW BIRTH WEIGHT BABY [None]
  - MATERNAL EXPOSURE TIMING UNSPECIFIED [None]
  - PREMATURE BABY [None]
  - CAESAREAN SECTION [None]
